FAERS Safety Report 25422539 (Version 1)
Quarter: 2025Q2

REPORT INFORMATION
  Report Type: Spontaneous
  Country: CA (occurrence: CA)
  Receive Date: 20250611
  Receipt Date: 20250611
  Transmission Date: 20250716
  Serious: Yes (Hospitalization, Other)
  Sender: Steriscience PTE
  Company Number: CA-STERISCIENCE B.V.-2025-ST-001132

PATIENT
  Age: 5 Decade
  Sex: Female

DRUGS (13)
  1. MIDAZOLAM [Suspect]
     Active Substance: MIDAZOLAM
     Indication: Generalised anxiety disorder
     Route: 065
  2. KETOROLAC [Suspect]
     Active Substance: KETOROLAC TROMETHAMINE
     Indication: Pelvic pain
     Route: 065
  3. KETOROLAC [Suspect]
     Active Substance: KETOROLAC TROMETHAMINE
     Indication: Cancer pain
  4. HYDROMORPHONE [Suspect]
     Active Substance: HYDROMORPHONE
     Indication: Cancer pain
     Route: 065
  5. HYDROMORPHONE [Suspect]
     Active Substance: HYDROMORPHONE
     Indication: Pelvic pain
  6. DEXAMETHASONE [Suspect]
     Active Substance: DEXAMETHASONE
     Indication: Cancer pain
     Route: 065
  7. DEXAMETHASONE [Suspect]
     Active Substance: DEXAMETHASONE
     Indication: Pelvic pain
  8. KETAMINE [Suspect]
     Active Substance: KETAMINE
     Indication: Cancer pain
     Route: 065
  9. KETAMINE [Suspect]
     Active Substance: KETAMINE
     Indication: Pelvic pain
     Dosage: 25 MILLIGRAM, QH
     Route: 065
  10. FENTANYL [Suspect]
     Active Substance: FENTANYL
     Indication: Cancer pain
     Route: 065
  11. FENTANYL [Suspect]
     Active Substance: FENTANYL
     Indication: Pelvic pain
     Dosage: 160 MICROGRAM, QH
     Route: 065
  12. METHADONE [Concomitant]
     Active Substance: METHADONE HYDROCHLORIDE
     Indication: Cancer pain
     Dosage: 22 MILLIGRAM, Q8H
     Route: 048
  13. METHADONE [Concomitant]
     Active Substance: METHADONE HYDROCHLORIDE
     Indication: Pelvic pain
     Dosage: 125 MILLIGRAM, Q8H
     Route: 065

REACTIONS (5)
  - Delirium [None]
  - Paradoxical drug reaction [None]
  - Agitation [None]
  - Drug ineffective for unapproved indication [Unknown]
  - Off label use [Unknown]
